FAERS Safety Report 13297648 (Version 1)
Quarter: 2017Q1

REPORT INFORMATION
  Report Type: Spontaneous
  Country: US (occurrence: US)
  Receive Date: 20170305
  Receipt Date: 20170305
  Transmission Date: 20170428
  Serious: Yes (Hospitalization)
  Sender: FDA-Public Use
  Company Number: None

PATIENT
  Age: 55 Year
  Sex: Female
  Weight: 71.55 kg

DRUGS (1)
  1. LOSARTAN POTASSIUM 100MG [Suspect]
     Active Substance: LOSARTAN POTASSIUM
     Indication: HYPERTENSION
     Dosage: ?          QUANTITY:1 TABLET(S);?
     Route: 048
     Dates: start: 20160202, end: 20161110

REACTIONS (7)
  - Product quality issue [None]
  - Bilirubin conjugated increased [None]
  - International normalised ratio increased [None]
  - Blood albumin increased [None]
  - Blood bilirubin unconjugated increased [None]
  - Liver injury [None]
  - Prothrombin time prolonged [None]

NARRATIVE: CASE EVENT DATE: 20160621
